FAERS Safety Report 4507392-3 (Version None)
Quarter: 2004Q4

REPORT INFORMATION
  Report Type: 
  Country: None (occurrence: None)
  Receive Date: 20041118
  Receipt Date: 20041107
  Transmission Date: 20050328
  Serious: Yes (Other)
  Sender: FDA-Public Use
  Company Number: 2004090129

PATIENT
  Sex: Male
  Weight: 81.6475 kg

DRUGS (6)
  1. LIPITOR [Suspect]
     Indication: BLOOD CHOLESTEROL INCREASED
     Dosage: 40 MG (40 MG, 1 IN 1 D), ORAL
     Route: 048
     Dates: end: 20041106
  2. NICOTINIC ACID [Suspect]
     Indication: BLOOD CHOLESTEROL INCREASED
     Dosage: ORAL
     Route: 048
  3. AMIODARONE HCL [Concomitant]
  4. FOLIC ACID [Concomitant]
  5. MULTIVITAMINS (ASCORBIC ACID, ERGOCALCIFEROL, FOLIC ACID, NICOTINAMIDE [Concomitant]
  6. FUROSEMIDE [Concomitant]

REACTIONS (11)
  - ACCIDENT [None]
  - ANAEMIA [None]
  - ATRIAL FIBRILLATION [None]
  - HAEMORRHAGE [None]
  - HYPERGLYCAEMIA [None]
  - HYPOCOAGULABLE STATE [None]
  - INJURY [None]
  - LIPIDS INCREASED [None]
  - LOW DENSITY LIPOPROTEIN INCREASED [None]
  - MUSCLE RUPTURE [None]
  - PROTHROMBIN TIME PROLONGED [None]
